FAERS Safety Report 10057709 (Version 3)
Quarter: 2017Q4

REPORT INFORMATION
  Report Type: Report from Study
  Country: DE (occurrence: DE)
  Receive Date: 20140404
  Receipt Date: 20171020
  Transmission Date: 20180320
  Serious: Yes (Hospitalization, Other)
  Sender: FDA-Public Use
  Company Number: DE-ROCHE-1376355

PATIENT
  Age: 71 Year
  Sex: Female

DRUGS (13)
  1. BEVACIZUMAB. [Suspect]
     Active Substance: BEVACIZUMAB
     Dosage: 3 CYCLES WITH PACLITAXEL
     Route: 065
     Dates: start: 201201, end: 201203
  2. BEVACIZUMAB. [Suspect]
     Active Substance: BEVACIZUMAB
     Dosage: 5 CYCLES WITH PACLITAXEL
     Route: 065
     Dates: start: 201203, end: 201206
  3. BEVACIZUMAB. [Suspect]
     Active Substance: BEVACIZUMAB
     Dosage: 4 CYCLES WITH PACLITAXEL
     Route: 042
     Dates: start: 20120823, end: 201210
  4. VOTUM (GERMANY) [Concomitant]
     Active Substance: OLMESARTAN MEDOXOMIL
     Indication: HYPERTENSION
     Route: 065
     Dates: start: 20120531
  5. XELODA [Suspect]
     Active Substance: CAPECITABINE
     Indication: BREAST CANCER
     Dosage: DATE OF RECENT DOSE : 23/AUG/2012
     Route: 048
     Dates: start: 20120126, end: 20120823
  6. PACLITAXEL. [Suspect]
     Active Substance: PACLITAXEL
     Indication: BREAST CANCER
     Dosage: 2 CYCLES WITH BEVACIZUMAB
     Route: 065
     Dates: start: 20111117, end: 201112
  7. PACLITAXEL. [Suspect]
     Active Substance: PACLITAXEL
     Dosage: 3 CYCLES WITH BAVACIZUMAB
     Route: 065
     Dates: start: 201201, end: 201203
  8. OLMESARTAN [Concomitant]
     Active Substance: OLMESARTAN
     Route: 065
     Dates: start: 20120531
  9. PACLITAXEL. [Suspect]
     Active Substance: PACLITAXEL
     Dosage: 4 CYCLES WITH BEVACIZUMAB
     Route: 065
     Dates: start: 201208, end: 201210
  10. PACLITAXEL. [Suspect]
     Active Substance: PACLITAXEL
     Dosage: 5 CYCLES WITH BEVACIZUMAB
     Route: 065
     Dates: start: 201203, end: 201206
  11. BEVACIZUMAB. [Suspect]
     Active Substance: BEVACIZUMAB
     Indication: BREAST CANCER
     Dosage: 2 CYCLES WITH PACLITAXEL
     Route: 042
     Dates: start: 20111117
  12. AFINITOR [Concomitant]
     Active Substance: EVEROLIMUS
     Route: 065
     Dates: start: 201303
  13. TAMOXIFEN [Concomitant]
     Active Substance: TAMOXIFEN
     Route: 066
     Dates: start: 20130515

REACTIONS (9)
  - Ureteral disorder [Unknown]
  - Pelvic abscess [Recovering/Resolving]
  - Diabetes mellitus inadequate control [Unknown]
  - Cerebral infarction [Recovered/Resolved with Sequelae]
  - General physical health deterioration [Unknown]
  - Malignant neoplasm progression [Unknown]
  - Cystitis [Unknown]
  - Haematuria [Unknown]
  - Bladder cancer [Not Recovered/Not Resolved]

NARRATIVE: CASE EVENT DATE: 201112
